FAERS Safety Report 19468872 (Version 1)
Quarter: 2021Q2

REPORT INFORMATION
  Report Type: Spontaneous
  Country: US (occurrence: US)
  Receive Date: 20210628
  Receipt Date: 20210628
  Transmission Date: 20210717
  Serious: No
  Sender: FDA-Public Use
  Company Number: US-XTTRIUM LABORATORIES, INC-2113194

PATIENT
  Sex: Male

DRUGS (1)
  1. SCRUB CARE EXIDINE ?4 CHG [Suspect]
     Active Substance: CHLORHEXIDINE GLUCONATE
     Route: 003
     Dates: start: 20210517, end: 20210517

REACTIONS (1)
  - Eye irritation [Unknown]

NARRATIVE: CASE EVENT DATE: 20210517
